FAERS Safety Report 6314017-3 (Version None)
Quarter: 2009Q3

REPORT INFORMATION
  Report Type: 
  Country: None (occurrence: None)
  Receive Date: 20090818
  Receipt Date: 20090813
  Transmission Date: 20100115
  Serious: Yes (Other)
  Sender: FDA-Public Use
  Company Number: LT-ABBOTT-09P-234-0578804-00

PATIENT
  Sex: Male

DRUGS (9)
  1. DEPAKENE [Suspect]
     Indication: EPILEPSY
     Route: 048
     Dates: start: 19990101, end: 20090401
  2. DEPAKENE [Suspect]
     Route: 048
     Dates: start: 20090501, end: 20090501
  3. DEPAKENE [Suspect]
     Route: 048
     Dates: start: 20090401, end: 20090501
  4. DEPAKENE [Suspect]
     Route: 048
     Dates: start: 20090501, end: 20090601
  5. DEPAKENE [Suspect]
     Route: 048
     Dates: start: 20090601, end: 20090801
  6. DEPAKENE [Suspect]
     Route: 048
     Dates: start: 20090801
  7. CLONAZEPAM [Concomitant]
     Indication: EPILEPSY
     Route: 048
     Dates: start: 19990101
  8. LAMICTAL [Concomitant]
     Indication: EPILEPSY
     Route: 048
     Dates: end: 20070101
  9. LAMICTAL [Concomitant]
     Route: 048
     Dates: start: 20070101

REACTIONS (7)
  - ASTHENIA [None]
  - CONSTIPATION [None]
  - DRUG INEFFECTIVE [None]
  - EPILEPSY [None]
  - MUSCLE TWITCHING [None]
  - PRODUCT QUALITY ISSUE [None]
  - SOMNOLENCE [None]
